FAERS Safety Report 8928043 (Version 1)
Quarter: 2012Q4

REPORT INFORMATION
  Report Type: Spontaneous
  Country: US (occurrence: None)
  Receive Date: 20121120
  Receipt Date: 20121120
  Transmission Date: 20130627
  Serious: Yes (Death)
  Sender: FDA-Public Use
  Company Number: DSA_60892_2012

PATIENT
  Age: 83 Year
  Sex: Male

DRUGS (4)
  1. XENAZINE 12.5 MG (NOT SPECIFIED) [Suspect]
     Indication: PRODUCT USED FOR UNKNOWN INDICATION
     Dosage: 12.5 mg qd, week 1
     Dates: start: 2012
  2. XENAZINE 12.5 MG (NOT SPECIFIED) [Suspect]
     Indication: PRODUCT USED FOR UNKNOWN INDICATION
     Dosage: 12.5 mg bid, week 2
     Dates: start: 2012
  3. XENAZINE 12.5 MG (NOT SPECIFIED) [Suspect]
     Indication: PRODUCT USED FOR UNKNOWN INDICATION
     Dosage: 12.5 mg in the morning and 25 mg in the evening; week 3
     Dates: start: 2012
  4. XENAZINE 12.5 MG (NOT SPECIFIED) [Suspect]
     Indication: PRODUCT USED FOR UNKNOWN INDICATION
     Dosage: 25 mg bid, week 4
     Dates: start: 2012

REACTIONS (1)
  - Death [None]
